FAERS Safety Report 10636049 (Version 2)
Quarter: 2015Q1

REPORT INFORMATION
  Report Type: Spontaneous
  Country: JP (occurrence: JP)
  Receive Date: 20141205
  Receipt Date: 20150106
  Transmission Date: 20150720
  Serious: Yes (Death, Hospitalization, Other)
  Sender: FDA-Public Use
  Company Number: JP-BAYER-2014-178206

PATIENT
  Age: 81 Year
  Sex: Female
  Weight: 42 kg

DRUGS (10)
  1. ETIZOLAM [Suspect]
     Active Substance: ETIZOLAM
     Indication: NEUROSIS
     Dosage: 0.5 MG, BID
     Route: 048
     Dates: start: 19990310
  2. PRAVASTATIN [Concomitant]
     Active Substance: PRAVASTATIN\PRAVASTATIN SODIUM
     Dosage: 10 MG, QD
  3. PERINDOPRIL ERBUMINE. [Suspect]
     Active Substance: PERINDOPRIL ERBUMINE
     Indication: HYPERTENSION
     Dosage: 4 MG, QD
     Route: 048
     Dates: start: 20111005
  4. AMLODIPINE [Concomitant]
     Active Substance: AMLODIPINE BESYLATE
     Dosage: 5 MG, QD
  5. NORVASC [Suspect]
     Active Substance: AMLODIPINE BESYLATE
     Indication: HYPERTENSION
     Dosage: 5 MG, QD
     Route: 048
     Dates: start: 19990223
  6. MEVALOTIN [Suspect]
     Active Substance: PRAVASTATIN SODIUM
     Indication: HYPERLIPIDAEMIA
     Dosage: 10 MG, QD
     Route: 048
     Dates: start: 19990223
  7. ACETYLSALICYLIC ACID({=100 MG) [Suspect]
     Active Substance: ASPIRIN
     Indication: ANGINA PECTORIS
     Dosage: 100 MG, QD
     Route: 048
     Dates: start: 20040630
  8. HERBESSER [Suspect]
     Active Substance: DILTIAZEM HYDROCHLORIDE
     Indication: HYPERTENSION
     Dosage: 100 MG, QD
     Route: 048
     Dates: start: 20040630
  9. NITROPEN [Concomitant]
     Active Substance: NITROGLYCERIN
     Dosage: 1 DF, QD
     Route: 060
     Dates: start: 20130515
  10. DILTIAZEM [Concomitant]
     Active Substance: DILTIAZEM
     Indication: ANGINA PECTORIS
     Dosage: 100 MG, QD
     Dates: start: 20130630

REACTIONS (3)
  - Constipation [None]
  - Pancreatic carcinoma stage IV [Fatal]
  - Metastases to liver [Fatal]
